FAERS Safety Report 18416038 (Version 1)
Quarter: 2020Q4

REPORT INFORMATION
  Report Type: Spontaneous
  Country: US (occurrence: US)
  Receive Date: 20201022
  Receipt Date: 20201022
  Transmission Date: 20210114
  Serious: No
  Sender: FDA-Public Use
  Company Number: US-TEVA-2020-US-1840203

PATIENT
  Age: 56 Year
  Sex: Male

DRUGS (1)
  1. ALPRAZOLAM ACTAVIS [Suspect]
     Active Substance: ALPRAZOLAM
     Indication: AGITATION
     Dosage: 2 MILLIGRAM DAILY;
     Route: 065

REACTIONS (3)
  - Incorrect dose administered [Unknown]
  - Product availability issue [Unknown]
  - Therapeutic product effect variable [Unknown]
